FAERS Safety Report 19854038 (Version 3)
Quarter: 2021Q4

REPORT INFORMATION
  Report Type: Other
  Country: IT (occurrence: IT)
  Receive Date: 20210920
  Receipt Date: 20211118
  Transmission Date: 20220303
  Serious: Yes (Hospitalization, Other)
  Sender: FDA-Public Use
  Company Number: IT-002147023-NVSC2021IT197258

PATIENT
  Age: 78 Year
  Sex: Male
  Weight: 56 kg

DRUGS (3)
  1. BENDAMUSTINE [Suspect]
     Active Substance: BENDAMUSTINE
     Indication: Product used for unknown indication
     Route: 042
     Dates: start: 20210421, end: 20210810
  2. COPANLISIB [Suspect]
     Active Substance: COPANLISIB
     Indication: Product used for unknown indication
     Dosage: 60 MG(3 CYCLE)
     Route: 042
     Dates: start: 20210420, end: 20210810
  3. RITUXIMAB [Suspect]
     Active Substance: RITUXIMAB
     Indication: Product used for unknown indication
     Dosage: 375 MG/M2
     Route: 041
     Dates: start: 20210421, end: 20210810

REACTIONS (6)
  - Cytomegalovirus test positive [Unknown]
  - Cholestasis [Unknown]
  - Obstructive pancreatitis [Recovered/Resolved]
  - Biliary colic [Unknown]
  - Abdominal pain upper [Recovered/Resolved]
  - Pyrexia [Recovered/Resolved]

NARRATIVE: CASE EVENT DATE: 20210809
